FAERS Safety Report 14825889 (Version 5)
Quarter: 2018Q2

REPORT INFORMATION
  Report Type: Spontaneous
  Country: US (occurrence: US)
  Receive Date: 20180430
  Receipt Date: 20180620
  Transmission Date: 20180711
  Serious: No
  Sender: FDA-Public Use
  Company Number: US-PFIZER INC-2018170606

PATIENT
  Age: 82 Year
  Sex: Male

DRUGS (7)
  1. ATORVASTATIN [Concomitant]
     Active Substance: ATORVASTATIN
     Dosage: 20 MG, UNK
  2. SUTENT [Suspect]
     Active Substance: SUNITINIB MALATE
     Indication: METASTATIC RENAL CELL CARCINOMA
     Dosage: 50 MG, DAILY, CYCLIC (28 DAYS ON/14 DAYS OFF)
     Dates: start: 20180420, end: 2018
  3. LISINOPRIL. [Concomitant]
     Active Substance: LISINOPRIL
     Dosage: 20 MG, UNK
  4. NIFEDIPINE. [Concomitant]
     Active Substance: NIFEDIPINE
     Dosage: 120 MG, UNK, (2 TB 60MG)/[TB2 60MG]
  5. SUTENT [Suspect]
     Active Substance: SUNITINIB MALATE
     Indication: LUNG DISORDER
     Dosage: 50 MG, CYCLIC (TAKE 1 CAPSULE (50MG) BY MOUTH EVERY DAY FOR 28 DAYS ON AND 14 DAYS OFF)
     Route: 048
     Dates: start: 20180416, end: 201804
  6. CLOPIDOGREL [Concomitant]
     Active Substance: CLOPIDOGREL BISULFATE
     Dosage: 75 MG, UNK
  7. DOXAZOSIN MESILATE [Concomitant]
     Active Substance: DOXAZOSIN MESYLATE
     Dosage: 4 MG, UNK

REACTIONS (2)
  - Chromaturia [Unknown]
  - Back pain [Unknown]

NARRATIVE: CASE EVENT DATE: 201804
